FAERS Safety Report 10079894 (Version 1)
Quarter: 2014Q2

REPORT INFORMATION
  Report Type: Spontaneous
  Country: US (occurrence: US)
  Receive Date: 20140415
  Receipt Date: 20140415
  Transmission Date: 20141212
  Serious: Yes (Hospitalization)
  Sender: FDA-Public Use
  Company Number: US-ELI_LILLY_AND_COMPANY-US201404001681

PATIENT
  Sex: Male

DRUGS (18)
  1. HUMAN INSULIN (RDNA ORIGIN) 30REG70NPH [Suspect]
     Indication: DIABETES MELLITUS
     Dosage: 110 U, TID
     Route: 065
     Dates: start: 201401
  2. NOVOLOG [Concomitant]
  3. LANTUS [Concomitant]
  4. BABY ASPIRIN [Concomitant]
     Dosage: 81 MG, BID
  5. BABY ASPIRIN [Concomitant]
     Dosage: 81 MG, BID
     Dates: start: 20140401
  6. POTASSIUM CHLORIDE [Concomitant]
     Dosage: 1 DF, BID
  7. FUROSEMID                          /00032601/ [Concomitant]
     Dosage: 40 MG, BID
  8. ENALAPRIL MALEATE [Concomitant]
     Dosage: 1 DF, EACH MORNING
  9. ALLOPURINOL [Concomitant]
     Dosage: 1 DF, QD
  10. SIMVASTATIN [Concomitant]
     Dosage: 40 MG, QD
  11. ISOSORBIDE [Concomitant]
     Dosage: 30 MG, BID
  12. CARVEDILOL [Concomitant]
     Dosage: 12.5 MG, BID
  13. GEMFIBROZIL [Concomitant]
     Dosage: 1 DF, BID
  14. NITROSTAT [Concomitant]
     Dosage: UNK, PRN
  15. VITAMINE E [Concomitant]
     Dosage: 2000 IU, QD
  16. FAMOTIDINE [Concomitant]
     Dosage: UNK, BID
  17. METAMUCIL                          /00029101/ [Concomitant]
     Dosage: UNK, TID
  18. IRON [Concomitant]
     Dosage: 65 MG, BID

REACTIONS (8)
  - Diverticulum [Unknown]
  - Rectal haemorrhage [Unknown]
  - Altered state of consciousness [Unknown]
  - Feeling abnormal [Unknown]
  - Blood ketone body [Recovered/Resolved]
  - Anaemia [Unknown]
  - Faeces discoloured [Unknown]
  - Haemorrhage [Unknown]
